FAERS Safety Report 25399643 (Version 1)
Quarter: 2025Q2

REPORT INFORMATION
  Report Type: Other
  Country: US (occurrence: US)
  Receive Date: 20250605
  Receipt Date: 20250605
  Transmission Date: 20250716
  Serious: Yes (Hospitalization)
  Sender: DEXCEL LTD.
  Company Number: US-PFIZER INC-202500093172

PATIENT
  Age: 65 Year
  Sex: Female

DRUGS (5)
  1. MYCOPHENOLIC ACID [Concomitant]
     Active Substance: MYCOPHENOLIC ACID
     Indication: Immunosuppressant drug therapy
  2. PREDNISONE [Concomitant]
     Active Substance: PREDNISONE
     Indication: Immunosuppressant drug therapy
  3. TOBRAMYCIN [Interacting]
     Active Substance: TOBRAMYCIN
     Indication: Serratia infection
     Dosage: 28-DAY CYCLE, ON POD 206
     Route: 055
  4. CYCLOSPORINE [Concomitant]
     Active Substance: CYCLOSPORINE
     Indication: Immunosuppressant drug therapy
  5. OMEPRAZOLE [Interacting]
     Active Substance: OMEPRAZOLE

REACTIONS (3)
  - Antibiotic level above therapeutic [Recovering/Resolving]
  - Acute kidney injury [Recovering/Resolving]
  - Drug interaction [Unknown]
